FAERS Safety Report 25316712 (Version 1)
Quarter: 2025Q2

REPORT INFORMATION
  Report Type: Spontaneous
  Country: US (occurrence: US)
  Receive Date: 20250515
  Receipt Date: 20250515
  Transmission Date: 20250717
  Serious: Yes (Hospitalization)
  Sender: BRISTOL-MYERS SQUIBB COMPANY
  Company Number: US-BRISTOL-MYERS SQUIBB COMPANY-2025-067902

PATIENT
  Age: 58 Year
  Sex: Male

DRUGS (2)
  1. THALOMID [Suspect]
     Active Substance: THALIDOMIDE
     Indication: Haemoptysis
     Dosage: ONCE DAILY
     Route: 048
     Dates: start: 202502
  2. THALOMID [Suspect]
     Active Substance: THALIDOMIDE
     Indication: Arteriovenous malformation

REACTIONS (2)
  - Hospitalisation [Unknown]
  - Off label use [Unknown]
